FAERS Safety Report 23483129 (Version 3)
Quarter: 2024Q1

REPORT INFORMATION
  Report Type: Spontaneous
  Country: FR (occurrence: FR)
  Receive Date: 20240205
  Receipt Date: 20240305
  Transmission Date: 20240410
  Serious: Yes (Other)
  Sender: FDA-Public Use
  Company Number: FR-OTSUKA-2024_002665

PATIENT
  Sex: Male

DRUGS (4)
  1. ABILIFY [Suspect]
     Active Substance: ARIPIPRAZOLE
     Indication: Schizophrenia
     Dosage: 5 MG, QD
     Route: 048
     Dates: start: 20231004, end: 20231019
  2. QUETIAPINE [Concomitant]
     Active Substance: QUETIAPINE
     Indication: Product used for unknown indication
     Dosage: 300 MG
     Route: 065
     Dates: start: 20231004, end: 20231010
  3. QUETIAPINE [Concomitant]
     Active Substance: QUETIAPINE
     Dosage: 150 MG
     Route: 065
     Dates: start: 20231019
  4. QUETIAPINE [Concomitant]
     Active Substance: QUETIAPINE
     Dosage: 400 MG
     Route: 065

REACTIONS (1)
  - Type 1 diabetes mellitus [Recovering/Resolving]
